FAERS Safety Report 5650291-4 (Version None)
Quarter: 2008Q1

REPORT INFORMATION
  Report Type: 
  Country: None (occurrence: None)
  Receive Date: 20080131
  Receipt Date: 20071202
  Transmission Date: 20080703
  Serious: No
  Sender: FDA-Public Use
  Company Number: US200712000303

PATIENT
  Age: 50 Year
  Sex: Female

DRUGS (6)
  1. BYETTA [Suspect]
     Indication: TYPE 2 DIABETES MELLITUS
     Dosage: 5 UG, 2/D, SUBCUTANEOUS
     Route: 058
     Dates: start: 20071101, end: 20071101
  2. GLUCOPHAGE [Concomitant]
  3. LIPITOR [Concomitant]
  4. TRICOR [Concomitant]
  5. LISINOPRIL /USA/ (LISINOPRIL) [Concomitant]
  6. DETROL [Concomitant]

REACTIONS (5)
  - BRONCHITIS [None]
  - CHEST DISCOMFORT [None]
  - COUGH [None]
  - DIARRHOEA [None]
  - VOMITING [None]
